FAERS Safety Report 6640489-0 (Version None)
Quarter: 2010Q1

REPORT INFORMATION
  Report Type: 
  Country: None (occurrence: None)
  Receive Date: 20100318
  Receipt Date: 20100308
  Transmission Date: 20100710
  Serious: Yes (Death, Hospitalization)
  Sender: FDA-Public Use
  Company Number: DE-PFIZER INC-2010010249

PATIENT
  Age: 80 Year
  Sex: Male

DRUGS (6)
  1. SUNITINIB MALATE [Suspect]
     Indication: RENAL CELL CARCINOMA
     Dosage: 50 MG, 1X/DAY
     Route: 048
     Dates: start: 20091017
  2. METOPROLOL [Concomitant]
     Dosage: UNK
     Dates: start: 20080101
  3. RAMIPRIL [Concomitant]
     Dosage: UNK
     Dates: start: 20080101
  4. HYDROCHLOROTHIAZIDE [Concomitant]
     Dosage: UNK
     Dates: start: 20080101
  5. AMLODIPINE [Concomitant]
     Dosage: UNK
     Dates: start: 20080101
  6. PHENPROCOUMON [Concomitant]
     Dosage: UNK
     Dates: start: 20040101

REACTIONS (1)
  - PLEURAL EFFUSION [None]
